FAERS Safety Report 10730866 (Version 1)
Quarter: 2015Q1

REPORT INFORMATION
  Report Type: Spontaneous
  Country: IN (occurrence: IN)
  Receive Date: 20150122
  Receipt Date: 20150122
  Transmission Date: 20150721
  Serious: Yes (Hospitalization, Other)
  Sender: FDA-Public Use
  Company Number: PHHY2015IN007842

PATIENT
  Age: 22 Year
  Sex: Male

DRUGS (8)
  1. GENTAMICIN. [Concomitant]
     Active Substance: GENTAMICIN
     Indication: PRODUCT USED FOR UNKNOWN INDICATION
     Route: 065
  2. CETRIZINE [Concomitant]
     Active Substance: CETIRIZINE HYDROCHLORIDE
     Indication: PRODUCT USED FOR UNKNOWN INDICATION
     Route: 065
  3. NICOTINE. [Concomitant]
     Active Substance: NICOTINE
     Indication: PRODUCT USED FOR UNKNOWN INDICATION
     Route: 065
  4. COTRIMOXAZOLE [Concomitant]
     Active Substance: SULFAMETHOXAZOLE\TRIMETHOPRIM
     Indication: PRODUCT USED FOR UNKNOWN INDICATION
     Route: 065
  5. PHENIRAMINE [Suspect]
     Active Substance: PHENIRAMINE
     Indication: PRODUCT USED FOR UNKNOWN INDICATION
     Route: 065
  6. DEXAMETHASONE. [Concomitant]
     Active Substance: DEXAMETHASONE
     Indication: PRODUCT USED FOR UNKNOWN INDICATION
     Route: 065
  7. PHENIRAMINE [Concomitant]
     Active Substance: PHENIRAMINE
     Indication: PRODUCT USED FOR UNKNOWN INDICATION
     Route: 065
  8. DEXAMETHASONE. [Suspect]
     Active Substance: DEXAMETHASONE
     Indication: PRODUCT USED FOR UNKNOWN INDICATION
     Route: 042

REACTIONS (24)
  - Irritability [Unknown]
  - Necrosis [Unknown]
  - Body tinea [Unknown]
  - Drug dependence [Unknown]
  - Hypochondriasis [Unknown]
  - Logorrhoea [Unknown]
  - Drug abuse [Unknown]
  - Elevated mood [Unknown]
  - Fatigue [Unknown]
  - Anxiety [Unknown]
  - Swelling face [Unknown]
  - Chest discomfort [Unknown]
  - Bone disorder [Unknown]
  - Mental disorder [Unknown]
  - Abnormal behaviour [Unknown]
  - Gastrointestinal infection [Unknown]
  - Musculoskeletal stiffness [Unknown]
  - Skin lesion [Unknown]
  - Respiratory tract infection [Unknown]
  - Hyperhidrosis [Unknown]
  - Dyspnoea [Unknown]
  - Pruritus [Unknown]
  - Depressed mood [Unknown]
  - Arthralgia [Unknown]
